FAERS Safety Report 12062013 (Version 1)
Quarter: 2016Q1

REPORT INFORMATION
  Report Type: Spontaneous
  Country: IN (occurrence: IN)
  Receive Date: 20160210
  Receipt Date: 20160210
  Transmission Date: 20160526
  Serious: Yes (Other)
  Sender: FDA-Public Use
  Company Number: IN-FRESENIUS KABI-FK201600453

PATIENT
  Sex: Male

DRUGS (1)
  1. INTRALIPID [Suspect]
     Active Substance: EGG PHOSPHOLIPIDS\GLYCERIN\SOYBEAN OIL
     Indication: PARENTERAL NUTRITION
     Route: 041

REACTIONS (5)
  - Pyrexia [Unknown]
  - Hypotension [Unknown]
  - Oxygen saturation decreased [Unknown]
  - Chills [Unknown]
  - Tachycardia [Unknown]
